FAERS Safety Report 18978753 (Version 3)
Quarter: 2021Q1

REPORT INFORMATION
  Report Type: Report from Study
  Country: None (occurrence: US)
  Receive Date: 20210308
  Receipt Date: 20210317
  Transmission Date: 20210420
  Serious: Yes (Death, Hospitalization, Other)
  Sender: FDA-Public Use
  Company Number: US-ABBVIE-21K-163-3801447-00

PATIENT
  Age: 72 Year
  Sex: Male
  Weight: 84.44 kg

DRUGS (12)
  1. AMANTADINE. [Concomitant]
     Active Substance: AMANTADINE HYDROCHLORIDE
     Indication: PRODUCT USED FOR UNKNOWN INDICATION
  2. DONEPEZIL. [Concomitant]
     Active Substance: DONEPEZIL
     Indication: PRODUCT USED FOR UNKNOWN INDICATION
  3. FLUDROCORTISONE [Concomitant]
     Active Substance: FLUDROCORTISONE
     Indication: PRODUCT USED FOR UNKNOWN INDICATION
  4. ASPIRIN. [Concomitant]
     Active Substance: ASPIRIN
     Indication: PRODUCT USED FOR UNKNOWN INDICATION
     Dosage: LOW DOSE ASPIRIN
  5. AMIODARONE [Concomitant]
     Active Substance: AMIODARONE
     Indication: PRODUCT USED FOR UNKNOWN INDICATION
  6. AMLODIPINE [Concomitant]
     Active Substance: AMLODIPINE BESYLATE
     Indication: PRODUCT USED FOR UNKNOWN INDICATION
  7. LEVOTHYROXINE. [Concomitant]
     Active Substance: LEVOTHYROXINE
     Indication: PRODUCT USED FOR UNKNOWN INDICATION
  8. DUOPA [Suspect]
     Active Substance: CARBIDOPA\LEVODOPA
     Indication: PRODUCT USED FOR UNKNOWN INDICATION
     Dosage: STRENGTH (CMP): 4.63 MG/ML 20 MG/ML
     Route: 050
     Dates: start: 201703, end: 20210301
  9. BACTRIM DS [Concomitant]
     Active Substance: SULFAMETHOXAZOLE\TRIMETHOPRIM
     Indication: PRODUCT USED FOR UNKNOWN INDICATION
  10. EUTHYROX [Concomitant]
     Active Substance: LEVOTHYROXINE SODIUM
     Indication: PRODUCT USED FOR UNKNOWN INDICATION
  11. DUOPA [Suspect]
     Active Substance: CARBIDOPA\LEVODOPA
     Route: 050
     Dates: end: 20210309
  12. GABAPENTIN. [Concomitant]
     Active Substance: GABAPENTIN
     Indication: PRODUCT USED FOR UNKNOWN INDICATION

REACTIONS (17)
  - Infection [Unknown]
  - Diverticulitis [Unknown]
  - White blood cell count increased [Unknown]
  - Pneumonia aspiration [Fatal]
  - Spinal fracture [Unknown]
  - Atrial fibrillation [Unknown]
  - Asthenia [Unknown]
  - Fall [Recovered/Resolved with Sequelae]
  - Memory impairment [Unknown]
  - Cholelithiasis [Unknown]
  - Pyrexia [Unknown]
  - Pain [Recovered/Resolved]
  - Parkinson^s disease [Fatal]
  - Lung disorder [Unknown]
  - Faeces soft [Unknown]
  - Hallucination [Unknown]
  - Gait inability [Unknown]

NARRATIVE: CASE EVENT DATE: 2021
